FAERS Safety Report 17665914 (Version 2)
Quarter: 2020Q2

REPORT INFORMATION
  Report Type: Report from Study
  Country: None (occurrence: US)
  Receive Date: 20200414
  Receipt Date: 20200519
  Transmission Date: 20200713
  Serious: Yes (Hospitalization, Other)
  Sender: FDA-Public Use
  Company Number: US-ABBVIE-20K-163-3361966-00

PATIENT
  Age: 48 Year
  Sex: Female

DRUGS (1)
  1. RINVOQ [Suspect]
     Active Substance: UPADACITINIB
     Indication: RHEUMATOID ARTHRITIS
     Route: 048

REACTIONS (11)
  - Volvulus [Recovering/Resolving]
  - Abdominal operation [Recovering/Resolving]
  - Abdominal operation [Unknown]
  - Abdominal pain [Unknown]
  - Surgery [Unknown]
  - Intestinal obstruction [Recovering/Resolving]
  - Abdominal cavity drainage [Unknown]
  - Dyspnoea [Unknown]
  - Anaemia [Unknown]
  - Post procedural complication [Recovering/Resolving]
  - Blood count abnormal [Unknown]

NARRATIVE: CASE EVENT DATE: 2019
